FAERS Safety Report 13526691 (Version 1)
Quarter: 2017Q2

REPORT INFORMATION
  Report Type: Spontaneous
  Country: US (occurrence: US)
  Receive Date: 20170508
  Receipt Date: 20170508
  Transmission Date: 20170830
  Serious: Yes (Other)
  Sender: FDA-Public Use
  Company Number: None

PATIENT
  Age: 66 Year
  Sex: Female

DRUGS (1)
  1. IBRANCE [Suspect]
     Active Substance: PALBOCICLIB
     Indication: BREAST CANCER
     Route: 048
     Dates: start: 20161220, end: 20170415

REACTIONS (4)
  - Palpitations [None]
  - Fatigue [None]
  - Alopecia [None]
  - Diarrhoea [None]

NARRATIVE: CASE EVENT DATE: 20170401
